FAERS Safety Report 12395663 (Version 1)
Quarter: 2016Q2

REPORT INFORMATION
  Report Type: Spontaneous
  Country: FR (occurrence: FR)
  Receive Date: 20160523
  Receipt Date: 20160523
  Transmission Date: 20160815
  Serious: Yes (Hospitalization)
  Sender: FDA-Public Use
  Company Number: FR-IPCA LABORATORIES LIMITED-IPC201605-000444

PATIENT
  Age: 86 Year
  Sex: Female

DRUGS (4)
  1. OXAZEPAM. [Suspect]
     Active Substance: OXAZEPAM
  2. OLANZAPINE. [Suspect]
     Active Substance: OLANZAPINE
  3. IRBESARTAN. [Suspect]
     Active Substance: IRBESARTAN
  4. HYDROCHLOROTHIAZIDE. [Suspect]
     Active Substance: HYDROCHLOROTHIAZIDE

REACTIONS (1)
  - Electrocardiogram QT prolonged [Unknown]
